FAERS Safety Report 11953853 (Version 2)
Quarter: 2016Q2

REPORT INFORMATION
  Report Type: Spontaneous
  Country: US (occurrence: US)
  Receive Date: 20160126
  Receipt Date: 20160519
  Transmission Date: 20160815
  Serious: No
  Sender: FDA-Public Use
  Company Number: US-PFIZER INC-2016018623

PATIENT
  Age: 58 Year
  Sex: Female
  Weight: 95 kg

DRUGS (2)
  1. GABAPENTIN. [Suspect]
     Active Substance: GABAPENTIN
     Indication: DEPRESSION
  2. GABAPENTIN. [Suspect]
     Active Substance: GABAPENTIN
     Indication: NEUROPATHY PERIPHERAL
     Dosage: 20 MG, UNK
     Dates: start: 20150415

REACTIONS (3)
  - Product use issue [Unknown]
  - Drug intolerance [Unknown]
  - Grunting [Unknown]
